FAERS Safety Report 23118713 (Version 5)
Quarter: 2024Q2

REPORT INFORMATION
  Report Type: Report from Study
  Country: US (occurrence: US)
  Receive Date: 20231028
  Receipt Date: 20240411
  Transmission Date: 20240717
  Serious: Yes (Hospitalization)
  Sender: FDA-Public Use
  Company Number: US-002147023-NVSC2023US231487

PATIENT
  Sex: Female
  Weight: 71 kg

DRUGS (1)
  1. VIJOICE [Suspect]
     Active Substance: ALPELISIB
     Indication: Malformation venous
     Dosage: 250 MG (10 DOSES AT 250 MG)
     Route: 065
     Dates: start: 20230801, end: 20230801

REACTIONS (5)
  - Skin reaction [Recovered/Resolved]
  - Skin exfoliation [Recovered/Resolved]
  - Skin burning sensation [Recovered/Resolved]
  - Severe cutaneous adverse reaction [Recovered/Resolved]
  - Rash [Unknown]
